FAERS Safety Report 10734170 (Version 1)
Quarter: 2015Q1

REPORT INFORMATION
  Report Type: Spontaneous
  Country: DK (occurrence: DK)
  Receive Date: 20150123
  Receipt Date: 20150123
  Transmission Date: 20150721
  Serious: Yes (Other)
  Sender: FDA-Public Use
  Company Number: DK-PFIZER INC-2015026842

PATIENT
  Age: 40 Year
  Sex: Male
  Weight: 107 kg

DRUGS (6)
  1. RISPERDAL [Suspect]
     Active Substance: RISPERIDONE
     Indication: SCHIZOPHRENIA
     Dosage: 3 MG AT NIGHT AND 1 MG AS NEEDED
     Route: 048
     Dates: start: 2003
  2. ALOPAM [Concomitant]
     Active Substance: OXAZEPAM
     Dosage: 15 MG, AS NEEDED
     Route: 048
     Dates: start: 2007
  3. NORITREN [Concomitant]
     Active Substance: NORTRIPTYLINE HYDROCHLORIDE
     Dosage: 150 MG DAILY AT NIGHT AS NEEDED
  4. ZELDOX [Suspect]
     Active Substance: ZIPRASIDONE
     Dosage: 20 MG, 2X/DAY
     Route: 048
     Dates: start: 2007, end: 200810
  5. ZELDOX [Suspect]
     Active Substance: ZIPRASIDONE
     Dosage: 20 MG IN THE MORNING AND 40 MG AT NIGHT
     Route: 048
  6. ZELDOX [Suspect]
     Active Substance: ZIPRASIDONE
     Indication: SCHIZOPHRENIA
     Dosage: UNK
     Route: 048
     Dates: end: 2006

REACTIONS (5)
  - Thirst [Unknown]
  - Type 2 diabetes mellitus [Not Recovered/Not Resolved]
  - Mental disorder [Unknown]
  - Fatigue [Unknown]
  - Pollakiuria [Unknown]

NARRATIVE: CASE EVENT DATE: 2007
